FAERS Safety Report 8120406-7 (Version None)
Quarter: 2012Q1

REPORT INFORMATION
  Report Type: 
  Country: None (occurrence: None)
  Receive Date: 20120207
  Receipt Date: 20120119
  Transmission Date: 20120608
  Serious: Yes (Hospitalization)
  Sender: FDA-Public Use
  Company Number: US-VIIV HEALTHCARE LIMITED-B0779771A

PATIENT
  Sex: Male
  Weight: 75.5 kg

DRUGS (10)
  1. RITONAVIR [Suspect]
     Indication: HIV INFECTION
     Dosage: 100MG PER DAY
     Dates: start: 20111117, end: 20111222
  2. EPZICOM [Suspect]
     Indication: HIV INFECTION
     Dosage: 1TAB PER DAY
     Dates: start: 20100218, end: 20111222
  3. LAMOTRIGINE [Concomitant]
     Indication: BIPOLAR DISORDER
     Route: 048
     Dates: start: 20101116
  4. BACTRIM [Concomitant]
     Indication: ANTIFUNGAL PROPHYLAXIS
     Route: 048
     Dates: start: 20090813
  5. RALTEGRAVIR [Suspect]
     Indication: HIV INFECTION
     Dosage: 800MG PER DAY
     Dates: start: 20100222, end: 20111222
  6. NO THERAPY-VIIV [Suspect]
     Indication: HIV INFECTION
  7. DARUNAVIR [Suspect]
     Indication: HIV INFECTION
     Dosage: 800MG PER DAY
     Dates: start: 20111117, end: 20111222
  8. NALTREXONE [Concomitant]
     Indication: ALCOHOL ABUSE
     Route: 048
     Dates: start: 20110215
  9. IBUPROFEN [Concomitant]
     Indication: ARTHRALGIA
     Route: 048
     Dates: start: 20090813
  10. OMEPRAZOLE [Concomitant]
     Indication: GASTROOESOPHAGEAL REFLUX DISEASE
     Route: 048
     Dates: start: 20090721

REACTIONS (1)
  - RHABDOMYOLYSIS [None]
